FAERS Safety Report 5929433-9 (Version None)
Quarter: 2008Q3

REPORT INFORMATION
  Report Type: 
  Country: None (occurrence: None)
  Receive Date: 20080922
  Receipt Date: 20080819
  Transmission Date: 20090109
  Serious: Yes (Other)
  Sender: FDA-Public Use
  Company Number: PHEH2008US05303

PATIENT
  Sex: Female

DRUGS (2)
  1. MIACALCIN [Suspect]
     Dosage: INTRANASAL
  2. VITAMIN D [Suspect]
     Dosage: 1000 IU, ORAL
     Route: 048
     Dates: end: 20080601

REACTIONS (1)
  - BLOOD PRESSURE INCREASED [None]
